FAERS Safety Report 7680799-1 (Version None)
Quarter: 2011Q3

REPORT INFORMATION
  Report Type: 
  Country: None (occurrence: None)
  Receive Date: 20110812
  Receipt Date: 20110809
  Transmission Date: 20111222
  Serious: Yes (Life-Threatening, Hospitalization, Disabling)
  Sender: FDA-Public Use
  Company Number: US-MERCK-1105USA03670

PATIENT
  Age: 70 Year
  Sex: Female

DRUGS (7)
  1. JANUVIA [Suspect]
     Indication: TYPE 2 DIABETES MELLITUS
     Route: 048
     Dates: start: 20100601
  2. LEVOXYL [Concomitant]
     Route: 065
  3. LIPITOR [Concomitant]
     Route: 065
  4. JANUVIA [Suspect]
     Route: 048
     Dates: end: 20100601
  5. METFORMIN [Concomitant]
     Route: 065
  6. HYZAAR [Concomitant]
     Route: 048
  7. ACTOS [Concomitant]
     Route: 065

REACTIONS (1)
  - PANCREATIC CARCINOMA METASTATIC [None]
